FAERS Safety Report 7512369-X (Version None)
Quarter: 2011Q2

REPORT INFORMATION
  Report Type: 
  Country: None (occurrence: None)
  Receive Date: 20110531
  Receipt Date: 20110523
  Transmission Date: 20111010
  Serious: Yes (Hospitalization)
  Sender: FDA-Public Use
  Company Number: JP-ROCHE-692929

PATIENT
  Sex: Female

DRUGS (32)
  1. TOCILIZUMAB [Suspect]
     Indication: RHEUMATOID ARTHRITIS
     Dosage: FORM: INJECTION.
     Route: 041
     Dates: start: 20090407, end: 20090407
  2. RHEUMATREX [Concomitant]
     Route: 048
     Dates: end: 20090724
  3. SODIUM AUROTHIOMALATE [Concomitant]
     Dosage: DRUG NAME: SHIOSOL, FORM:INJECTION.
     Route: 030
  4. TOCILIZUMAB [Suspect]
     Route: 041
     Dates: start: 20090529, end: 20090529
  5. TOCILIZUMAB [Suspect]
     Route: 041
     Dates: start: 20090626, end: 20090626
  6. TOCILIZUMAB [Suspect]
     Route: 041
     Dates: start: 20090724, end: 20090724
  7. TOCILIZUMAB [Suspect]
     Route: 041
     Dates: start: 20100930, end: 20100930
  8. RHEUMATREX [Concomitant]
     Route: 048
     Dates: start: 20090725, end: 20100406
  9. DEXAMETHASONE SODIUM PHOSPHATE [Concomitant]
     Dosage: FORM: INJECTION, DRUG: ORGADRONE
     Route: 014
  10. TOCILIZUMAB [Suspect]
     Route: 041
     Dates: start: 20091215, end: 20091215
  11. BREDININ [Concomitant]
     Route: 048
     Dates: end: 20100406
  12. PREDNISOLONE [Concomitant]
     Route: 048
     Dates: end: 20090724
  13. LOXONIN [Concomitant]
     Dosage: FORM: PERORAL AGENT.
     Route: 048
     Dates: end: 20100406
  14. TOCILIZUMAB [Suspect]
     Route: 041
     Dates: start: 20090821, end: 20090821
  15. TOCILIZUMAB [Suspect]
     Route: 041
     Dates: start: 20100108, end: 20100108
  16. TOCILIZUMAB [Suspect]
     Route: 041
     Dates: start: 20090428, end: 20090428
  17. TOCILIZUMAB [Suspect]
     Route: 041
     Dates: start: 20091016, end: 20091016
  18. WARFARIN POTASSIUM [Suspect]
     Indication: PROPHYLAXIS
     Route: 048
  19. RIMATIL [Concomitant]
     Route: 048
     Dates: end: 20100406
  20. PREDNISOLONE [Concomitant]
     Route: 048
     Dates: start: 20090822, end: 20100406
  21. FERROUS CITRATE [Concomitant]
     Route: 048
     Dates: end: 20100406
  22. FOLIC ACID [Concomitant]
     Route: 048
     Dates: end: 20100406
  23. TOCILIZUMAB [Suspect]
     Route: 041
     Dates: start: 20100805, end: 20100805
  24. SELBEX [Concomitant]
     Route: 048
     Dates: end: 20100406
  25. CANDESARTAN CILEXETIL [Concomitant]
     Route: 048
  26. TOCILIZUMAB [Suspect]
     Route: 041
     Dates: start: 20090918, end: 20090918
  27. PREDNISOLONE [Concomitant]
     Route: 048
     Dates: start: 20090725, end: 20090821
  28. INFREE [Concomitant]
     Route: 048
     Dates: end: 20100406
  29. METHYCOBAL [Concomitant]
     Dosage: FORM: PERORAL AGENT.
     Route: 048
     Dates: end: 20100406
  30. FERROUS CITRATE [Concomitant]
     Dosage: FORM: PERORAL AGENT.
     Route: 048
  31. TOCILIZUMAB [Suspect]
     Route: 041
     Dates: start: 20100902, end: 20100902
  32. ISONIAZID [Concomitant]
     Dosage: FORM: PERORAL AGENT.
     Route: 048
     Dates: start: 20090318, end: 20100406

REACTIONS (5)
  - CARDIAC FAILURE CONGESTIVE [None]
  - WHITE BLOOD CELL COUNT DECREASED [None]
  - FRACTURED ISCHIUM [None]
  - PUBIS FRACTURE [None]
  - HAEMORRHAGE SUBCUTANEOUS [None]
